FAERS Safety Report 4312936-0 (Version None)
Quarter: 2004Q1

REPORT INFORMATION
  Report Type: 
  Country: None (occurrence: None)
  Receive Date: 20040302
  Receipt Date: 20031223
  Transmission Date: 20041129
  Serious: No
  Sender: FDA-Public Use
  Company Number: 701446

PATIENT

DRUGS (1)
  1. AMEVIVE [Suspect]
     Indication: PSORIASIS
     Dates: start: 20030101

REACTIONS (3)
  - CD4 LYMPHOCYTES DECREASED [None]
  - CD8 LYMPHOCYTES DECREASED [None]
  - LYMPHOCYTE COUNT DECREASED [None]
